FAERS Safety Report 5205030-8 (Version None)
Quarter: 2007Q1

REPORT INFORMATION
  Report Type: 
  Country: None (occurrence: None)
  Receive Date: 20070110
  Receipt Date: 20061006
  Transmission Date: 20070707
  Serious: No
  Sender: FDA-Public Use
  Company Number: US-BRISTOL-MYERS SQUIBB COMPANY-13533799

PATIENT
  Age: 66 Year
  Sex: Female
  Weight: 94 kg

DRUGS (7)
  1. ABILIFY [Suspect]
     Indication: ABNORMAL DREAMS
     Dates: start: 20060101
  2. MIRTAZAPINE [Concomitant]
  3. LUNESTA [Concomitant]
  4. MELATONIN [Concomitant]
  5. PROVIGIL [Concomitant]
  6. BENICAR [Concomitant]
  7. NORVASC [Concomitant]

REACTIONS (1)
  - SOMNOLENCE [None]
